FAERS Safety Report 18007792 (Version 4)
Quarter: 2023Q1

REPORT INFORMATION
  Report Type: Spontaneous
  Country: US (occurrence: None)
  Receive Date: 20200710
  Receipt Date: 20230131
  Transmission Date: 20230417
  Serious: Yes (Other)
  Sender: FDA-Public Use
  Company Number: 2020SE84327

PATIENT
  Age: 20326 Day
  Sex: Male
  Weight: 86.2 kg

DRUGS (75)
  1. PRILOSEC [Suspect]
     Active Substance: OMEPRAZOLE MAGNESIUM
     Indication: Gastrooesophageal reflux disease
     Route: 048
     Dates: start: 200901, end: 201612
  2. PRILOSEC [Suspect]
     Active Substance: OMEPRAZOLE MAGNESIUM
     Indication: Dyspepsia
     Route: 048
     Dates: start: 200901, end: 201612
  3. PRILOSEC [Suspect]
     Active Substance: OMEPRAZOLE MAGNESIUM
     Indication: Gastrooesophageal reflux disease
     Dosage: 20.0MG UNKNOWN
     Route: 048
     Dates: start: 200901, end: 201601
  4. PRILOSEC [Suspect]
     Active Substance: OMEPRAZOLE MAGNESIUM
     Indication: Dyspepsia
     Dosage: 20.0MG UNKNOWN
     Route: 048
     Dates: start: 200901, end: 201601
  5. PRILOSEC OTC [Suspect]
     Active Substance: OMEPRAZOLE MAGNESIUM
     Indication: Gastrooesophageal reflux disease
     Route: 048
     Dates: start: 200901, end: 201612
  6. PRILOSEC OTC [Suspect]
     Active Substance: OMEPRAZOLE MAGNESIUM
     Indication: Dyspepsia
     Route: 048
     Dates: start: 200901, end: 201612
  7. PRILOSEC OTC [Suspect]
     Active Substance: OMEPRAZOLE MAGNESIUM
     Indication: Gastrooesophageal reflux disease
     Dosage: 20.0MG UNKNOWN
     Route: 048
     Dates: start: 200901, end: 201601
  8. PRILOSEC OTC [Suspect]
     Active Substance: OMEPRAZOLE MAGNESIUM
     Indication: Dyspepsia
     Dosage: 20.0MG UNKNOWN
     Route: 048
     Dates: start: 200901, end: 201601
  9. LISINOPRIL [Concomitant]
     Active Substance: LISINOPRIL
     Indication: Angiotensin converting enzyme inhibitor foetopathy
  10. VANCOMYCIN [Concomitant]
     Active Substance: VANCOMYCIN
     Indication: Chronic kidney disease
  11. ACETAMINOPHEN [Concomitant]
     Active Substance: ACETAMINOPHEN
     Indication: Pain
  12. ASPIRIN [Concomitant]
     Active Substance: ASPIRIN
     Indication: Cerebrovascular accident
  13. VITAMIN D3 [Concomitant]
     Active Substance: CHOLECALCIFEROL
     Indication: General physical condition
  14. TUMS [Concomitant]
     Active Substance: CALCIUM CARBONATE
  15. PEPTO-BISMOL [Concomitant]
     Active Substance: BISMUTH SUBSALICYLATE
  16. AMOXICILLIN [Concomitant]
     Active Substance: AMOXICILLIN
  17. LEVEMIR [Concomitant]
     Active Substance: INSULIN DETEMIR
  18. MINOCYCLINE [Concomitant]
     Active Substance: MINOCYCLINE HYDROCHLORIDE
  19. VITAMINS [Concomitant]
     Active Substance: VITAMINS
  20. NOVOLOG [Concomitant]
     Active Substance: INSULIN ASPART
  21. GABAPENTIN [Concomitant]
     Active Substance: GABAPENTIN
  22. LYRICA [Concomitant]
     Active Substance: PREGABALIN
  23. PENICILLIN [Concomitant]
     Active Substance: PENICILLIN
  24. METOPROLOL SUCCINATE [Concomitant]
     Active Substance: METOPROLOL SUCCINATE
  25. OXYCODONE [Concomitant]
     Active Substance: OXYCODONE
  26. CARVEDILOL [Concomitant]
     Active Substance: CARVEDILOL
  27. CIPROFLOXACIN [Concomitant]
     Active Substance: CIPROFLOXACIN
  28. FERROUS SULFATE [Concomitant]
     Active Substance: FERROUS SULFATE
  29. RENVELA [Concomitant]
     Active Substance: SEVELAMER CARBONATE
  30. ATORVASTATIN [Concomitant]
     Active Substance: ATORVASTATIN
  31. ZOFRAN [Concomitant]
     Active Substance: ONDANSETRON HYDROCHLORIDE
  32. HYDROXYZINE HYDROCHLORIDE [Concomitant]
     Active Substance: HYDROXYZINE HYDROCHLORIDE
  33. KETAMINE [Concomitant]
     Active Substance: KETAMINE
  34. DOXYCYCLINE HYCLATE [Concomitant]
     Active Substance: DOXYCYCLINE HYCLATE
  35. SODIUM BICARBONATE [Concomitant]
     Active Substance: SODIUM BICARBONATE
  36. BISACODYL [Concomitant]
     Active Substance: BISACODYL
  37. FENTANYL [Concomitant]
     Active Substance: FENTANYL
  38. COLACE [Concomitant]
     Active Substance: DOCUSATE SODIUM
  39. HEPARIN [Concomitant]
     Active Substance: HEPARIN SODIUM
  40. MILK OF MAGNESIA [Concomitant]
     Active Substance: MAGNESIUM HYDROXIDE
  41. PERIDEX [Concomitant]
     Active Substance: CHLORHEXIDINE GLUCONATE
  42. PROPOFOL [Concomitant]
     Active Substance: PROPOFOL
  43. PNEUMOVAX 23 [Concomitant]
     Active Substance: PNEUMOCOCCAL VACCINE, POLYVALENT 23
  44. KAYEXALATE [Concomitant]
     Active Substance: SODIUM POLYSTYRENE SULFONATE
  45. MANNITOL [Concomitant]
     Active Substance: MANNITOL
  46. SODIUM CHLORIDE [Concomitant]
     Active Substance: SODIUM CHLORIDE
  47. CEFEPIME [Concomitant]
     Active Substance: CEFEPIME HYDROCHLORIDE
  48. DEXTROSE [Concomitant]
     Active Substance: DEXTROSE
  49. FLAGYL [Concomitant]
     Active Substance: METRONIDAZOLE\METRONIDAZOLE HYDROCHLORIDE
  50. SILVADENE [Concomitant]
     Active Substance: SILVER SULFADIAZINE
  51. AUGMENTIN [Concomitant]
     Active Substance: AMOXICILLIN\CLAVULANATE POTASSIUM
  52. TAMSULOSIN [Concomitant]
     Active Substance: TAMSULOSIN
  53. ALBUTEROL [Concomitant]
     Active Substance: ALBUTEROL
  54. LIDOCAINE [Concomitant]
     Active Substance: LIDOCAINE
  55. NOREPINEPHRINE [Concomitant]
     Active Substance: NOREPINEPHRINE
  56. ACETARSOL/NEOMYCIN SULFATE/NYSTATIN/POLYMYXIN B SULFATE [Concomitant]
  57. ERYTHROMYCIN [Concomitant]
     Active Substance: ERYTHROMYCIN
  58. LINEZOLID [Concomitant]
     Active Substance: LINEZOLID
  59. RIFAMPIN [Concomitant]
     Active Substance: RIFAMPIN
  60. OXACILLIN [Concomitant]
     Active Substance: OXACILLIN SODIUM
  61. HYDROMORPHONE [Concomitant]
     Active Substance: HYDROMORPHONE
  62. LAMOTRIGINE [Concomitant]
     Active Substance: LAMOTRIGINE
  63. METOPROLOL [Concomitant]
     Active Substance: METOPROLOL
  64. CLOTRIMAZOLE [Concomitant]
     Active Substance: CLOTRIMAZOLE
  65. SULFAMETHOXAZOLE SODIUM/AMINOCAPROIC ACID/DIPOTASSIUM GLYCYRRHIZATE [Concomitant]
  66. XAREL [Concomitant]
  67. CICLOPIROX [Concomitant]
     Active Substance: CICLOPIROX
  68. GLIPIZIDE [Concomitant]
     Active Substance: GLIPIZIDE
  69. FLUOCINONIDE [Concomitant]
     Active Substance: FLUOCINONIDE
  70. INDOMETHACIN [Concomitant]
     Active Substance: INDOMETHACIN
  71. LANTUS SOLOSTAR [Concomitant]
     Active Substance: INSULIN GLARGINE
  72. TRICOR [Concomitant]
     Active Substance: FENOFIBRATE
  73. DETROL [Concomitant]
     Active Substance: TOLTERODINE TARTRATE
  74. JANUVIA [Concomitant]
     Active Substance: SITAGLIPTIN PHOSPHATE
  75. LOPERAMIDE [Concomitant]
     Active Substance: LOPERAMIDE

REACTIONS (6)
  - Acute kidney injury [Not Recovered/Not Resolved]
  - Chronic kidney disease [Not Recovered/Not Resolved]
  - Renal failure [Not Recovered/Not Resolved]
  - End stage renal disease [Unknown]
  - Nephrogenic anaemia [Unknown]
  - Hypervolaemia [Unknown]

NARRATIVE: CASE EVENT DATE: 20150619
